FAERS Safety Report 10176385 (Version 2)
Quarter: 2014Q2

REPORT INFORMATION
  Report Type: Spontaneous
  Country: US (occurrence: US)
  Receive Date: 20140516
  Receipt Date: 20140516
  Transmission Date: 20141212
  Serious: Yes (Other)
  Sender: FDA-Public Use
  Company Number: PHHY2014US055367

PATIENT
  Age: 57 Year
  Sex: Male

DRUGS (6)
  1. BACLOFEN INTRATHECAL [Suspect]
     Indication: MUSCLE SPASTICITY
     Dosage: 100 UG/ML, UNK
     Route: 037
  2. BACLOFEN INTRATHECAL [Suspect]
     Dosage: 110 UG, PER DAY
     Route: 037
  3. BENAZEPRIL [Suspect]
     Dosage: UNK UKN, UNK
     Route: 048
  4. SIMVASTATIN [Suspect]
     Dosage: UNK UKN, UNK
     Route: 048
  5. VENLAFAXINE [Suspect]
     Dosage: UNK UKN, UNK
     Route: 048
  6. WELLBUTRIN [Suspect]
     Dosage: UNK UKN, UNK
     Route: 048

REACTIONS (3)
  - Incision site complication [Unknown]
  - Patient-device incompatibility [Unknown]
  - Implant site erosion [Unknown]
